FAERS Safety Report 5836132-0 (Version None)
Quarter: 2008Q3

REPORT INFORMATION
  Report Type: 
  Country: None (occurrence: None)
  Receive Date: 20080805
  Receipt Date: 20080721
  Transmission Date: 20090109
  Serious: Yes (Other)
  Sender: FDA-Public Use
  Company Number: DSA_32164_2008

PATIENT
  Age: 76 Year
  Sex: Female

DRUGS (15)
  1. ENALAPRIL MALEATE [Suspect]
     Indication: CARDIAC DISORDER
     Dosage: (10 MG QD ORAL), (15 MG QD ORAL), (20 MG QD ORAL), (15 MG QD ORAL),
     Route: 048
     Dates: start: 19930101, end: 20020101
  2. ENALAPRIL MALEATE [Suspect]
     Indication: CARDIAC DISORDER
     Dosage: (10 MG QD ORAL), (15 MG QD ORAL), (20 MG QD ORAL), (15 MG QD ORAL),
     Route: 048
     Dates: start: 20020101, end: 20080407
  3. ENALAPRIL MALEATE [Suspect]
     Indication: CARDIAC DISORDER
     Dosage: (10 MG QD ORAL), (15 MG QD ORAL), (20 MG QD ORAL), (15 MG QD ORAL),
     Route: 048
     Dates: start: 20080408, end: 20080507
  4. ENALAPRIL MALEATE [Suspect]
     Indication: CARDIAC DISORDER
     Dosage: (10 MG QD ORAL), (15 MG QD ORAL), (20 MG QD ORAL), (15 MG QD ORAL),
     Route: 048
     Dates: start: 20080508
  5. ACETAMINOPHEN [Concomitant]
  6. ALLOPURINOL [Concomitant]
  7. PLEDNIL [Concomitant]
  8. CARTIA XT [Concomitant]
  9. DULOCLAX [Concomitant]
  10. DOCUSATE SODIUM W/SENNA [Concomitant]
  11. FUROSEMIDE [Concomitant]
  12. THYROXIN [Concomitant]
  13. OMEGA-3 MARINE TRIGLYCERIDES [Concomitant]
  14. SOMAC [Concomitant]
  15. VITAMINS NOS [Concomitant]

REACTIONS (9)
  - ABDOMINAL PAIN UPPER [None]
  - BREAST CANCER FEMALE [None]
  - COUGH [None]
  - DRY EYE [None]
  - DRY MOUTH [None]
  - FOREIGN BODY SENSATION IN EYES [None]
  - LABILE BLOOD PRESSURE [None]
  - URINE OUTPUT DECREASED [None]
  - YELLOW SKIN [None]
